FAERS Safety Report 8548616-5 (Version None)
Quarter: 2012Q3

REPORT INFORMATION
  Report Type: 
  Country: None (occurrence: None)
  Receive Date: 20120720
  Receipt Date: 20120720
  Transmission Date: 20120928
  Serious: Yes (Hospitalization)
  Sender: FDA-Public Use
  Company Number: None

PATIENT
  Age: 38 Year
  Sex: Female
  Weight: 63.5036 kg

DRUGS (1)
  1. LYSTEDA [Suspect]
     Indication: MENORRHAGIA
     Dosage: 2 TABLETS 3 TIMES A DAY 3 DAYS PO
     Route: 048
     Dates: start: 20120710, end: 20120712

REACTIONS (1)
  - PULMONARY EMBOLISM [None]
